FAERS Safety Report 9261572 (Version 6)
Quarter: 2013Q3

REPORT INFORMATION
  Report Type: Report from Study
  Country: NL (occurrence: NL)
  Receive Date: 20130429
  Receipt Date: 20130812
  Transmission Date: 20140515
  Serious: Yes (Death, Life-Threatening)
  Sender: FDA-Public Use
  Company Number: NL-CELGENEUS-114-21880-13043291

PATIENT
  Age: 69 Year
  Sex: Female
  Weight: 72 kg

DRUGS (14)
  1. REVLIMID [Suspect]
     Indication: ACUTE MYELOID LEUKAEMIA
     Route: 048
     Dates: start: 20130416, end: 20130416
  2. REVLIMID [Suspect]
     Route: 048
     Dates: end: 20130418
  3. REVLIMID [Suspect]
     Route: 048
     Dates: start: 20130422, end: 20130426
  4. CYTARABINE [Suspect]
     Indication: ACUTE MYELOID LEUKAEMIA
     Route: 041
     Dates: start: 20130416, end: 20130423
  5. DAUNOMYCIN [Suspect]
     Indication: ACUTE MYELOID LEUKAEMIA
     Route: 041
     Dates: start: 20130416, end: 20130418
  6. TRAZOLAN [Concomitant]
     Indication: DEPRESSION
     Dosage: 150 MILLIGRAM
     Route: 048
     Dates: start: 20130403, end: 20130416
  7. TAZOCIN [Concomitant]
     Indication: ASPIRATION
     Dosage: 13.5 GRAM
     Route: 041
     Dates: start: 20130415, end: 20130417
  8. TAZOCIN [Concomitant]
     Indication: FEBRILE NEUTROPENIA
     Dosage: 13.5 GRAM
     Route: 041
     Dates: start: 20130426
  9. FENTANYL [Concomitant]
     Indication: BACK PAIN
     Dosage: 600 MICROGRAM
     Route: 062
     Dates: start: 20130409, end: 20130417
  10. HALOPERIDOL [Concomitant]
     Indication: DELIRIUM
     Dosage: 2 MILLIGRAM
     Route: 048
     Dates: start: 20130415, end: 20130416
  11. NOZINAN [Concomitant]
     Indication: DEPRESSION
     Dosage: 25 MILLIGRAM
     Route: 048
     Dates: start: 20130409, end: 20130416
  12. FLUCONAZOLE [Concomitant]
     Indication: PRODUCT USED FOR UNKNOWN INDICATION
     Dosage: 400 MILLIGRAM
     Route: 048
     Dates: start: 20130414, end: 20130416
  13. FLUCONAZOLE [Concomitant]
     Dosage: 400 MILLIGRAM
     Route: 048
     Dates: start: 20130416, end: 20130428
  14. DIAZEPAM [Concomitant]
     Indication: DEPRESSION
     Dosage: 4 MILLIGRAM
     Route: 048
     Dates: start: 20130409, end: 20130415

REACTIONS (2)
  - Depressed level of consciousness [Recovered/Resolved]
  - Escherichia sepsis [Fatal]
